FAERS Safety Report 5895899-6 (Version None)
Quarter: 2008Q3

REPORT INFORMATION
  Report Type: 
  Country: None (occurrence: None)
  Receive Date: 20080924
  Receipt Date: 20080917
  Transmission Date: 20090109
  Serious: Yes (Hospitalization)
  Sender: FDA-Public Use
  Company Number: US-ELI_LILLY_AND_COMPANY-US200809003906

PATIENT
  Sex: Female

DRUGS (8)
  1. HUMULIN 70/30 [Suspect]
     Dosage: UNK, UNK
     Dates: start: 19900101, end: 20070601
  2. HUMULIN N [Suspect]
  3. SIMVASTATIN [Concomitant]
     Indication: BLOOD CHOLESTEROL
  4. CARVEDILOL [Concomitant]
  5. SPIRONOLACTONE [Concomitant]
     Dates: end: 20080201
  6. KLOR-CON [Concomitant]
     Dates: end: 20080201
  7. LANTUS [Concomitant]
     Dosage: UNK, UNK
     Dates: start: 20070601
  8. INSULIN ASPART [Concomitant]
     Dosage: UNK, UNK
     Dates: start: 20070601

REACTIONS (8)
  - BLOOD CHOLESTEROL INCREASED [None]
  - BLOOD POTASSIUM INCREASED [None]
  - BLOOD PRESSURE ABNORMAL [None]
  - CARDIAC FAILURE CONGESTIVE [None]
  - EXPIRED DRUG ADMINISTERED [None]
  - FEELING ABNORMAL [None]
  - HOSPITALISATION [None]
  - HYPERTENSION [None]
